FAERS Safety Report 10683758 (Version 1)
Quarter: 2014Q4

REPORT INFORMATION
  Report Type: Spontaneous
  Country: US (occurrence: US)
  Receive Date: 20141230
  Receipt Date: 20141230
  Transmission Date: 20150529
  Serious: No
  Sender: FDA-Public Use
  Company Number: US-PFIZER INC-2014358904

PATIENT
  Age: 58 Year
  Sex: Female
  Weight: 86.17 kg

DRUGS (2)
  1. LYRICA [Suspect]
     Active Substance: PREGABALIN
     Indication: FIBROMYALGIA
     Dosage: 100 MG, UNK
     Dates: start: 201402
  2. LYRICA [Suspect]
     Active Substance: PREGABALIN
     Dosage: 150 MG, UNK
     Dates: end: 201404

REACTIONS (5)
  - Pain [Unknown]
  - Drug ineffective [Unknown]
  - Disease recurrence [Recovering/Resolving]
  - Nasopharyngitis [Unknown]
  - Laryngitis [Recovering/Resolving]

NARRATIVE: CASE EVENT DATE: 2014
